FAERS Safety Report 21659755 (Version 1)
Quarter: 2022Q4

REPORT INFORMATION
  Report Type: Spontaneous
  Country: GB (occurrence: GB)
  Receive Date: 20221129
  Receipt Date: 20221129
  Transmission Date: 20230113
  Serious: Yes (Life-Threatening, Other)
  Sender: FDA-Public Use
  Company Number: GB-MHRA-MED-202211251649530360-QTYCF

PATIENT
  Age: 72 Year
  Sex: Female
  Weight: 75 kg

DRUGS (2)
  1. CANAGLIFLOZIN [Suspect]
     Active Substance: CANAGLIFLOZIN
     Indication: Diabetes mellitus
     Dosage: 300MG; ;
     Route: 048
  2. GLIMEPIRIDE [Concomitant]
     Active Substance: GLIMEPIRIDE
     Indication: Diabetes mellitus
     Route: 065

REACTIONS (1)
  - Euglycaemic diabetic ketoacidosis [Recovering/Resolving]

NARRATIVE: CASE EVENT DATE: 20221124
